FAERS Safety Report 18950869 (Version 4)
Quarter: 2024Q1

REPORT INFORMATION
  Report Type: Spontaneous
  Country: US (occurrence: None)
  Receive Date: 20210228
  Receipt Date: 20240206
  Transmission Date: 20240410
  Serious: No
  Sender: FDA-Public Use
  Company Number: US-ROCHE-2689910

PATIENT
  Sex: Female

DRUGS (1)
  1. XOLAIR [Suspect]
     Active Substance: OMALIZUMAB
     Indication: Asthma
     Dosage: VIAL
     Route: 058
     Dates: start: 20181114

REACTIONS (4)
  - Depression [Unknown]
  - Panic attack [Unknown]
  - Anxiety [Unknown]
  - Bone pain [Unknown]
